FAERS Safety Report 25637224 (Version 1)
Quarter: 2025Q3

REPORT INFORMATION
  Report Type: Spontaneous
  Country: EU (occurrence: EU)
  Receive Date: 20250804
  Receipt Date: 20250804
  Transmission Date: 20251021
  Serious: Yes (Other)
  Sender: BRISTOL-MYERS SQUIBB COMPANY
  Company Number: None

PATIENT
  Age: 63 Year
  Sex: Female
  Weight: 64 kg

DRUGS (1)
  1. OPDIVO [Suspect]
     Active Substance: NIVOLUMAB
     Indication: Malignant melanoma
     Route: 042
     Dates: start: 20250401, end: 20250610

REACTIONS (4)
  - Arthralgia [Recovering/Resolving]
  - Granuloma skin [Recovering/Resolving]
  - Erythema nodosum [Recovering/Resolving]
  - Sarcoidosis [Recovering/Resolving]

NARRATIVE: CASE EVENT DATE: 20250415
